FAERS Safety Report 4795549-6 (Version None)
Quarter: 2005Q4

REPORT INFORMATION
  Report Type: 
  Country: None (occurrence: None)
  Receive Date: 20051012
  Receipt Date: 20051004
  Transmission Date: 20060501
  Serious: Yes (Other)
  Sender: FDA-Public Use
  Company Number: GR-JNJFOC-20051000675

PATIENT
  Age: 31 Year
  Sex: Female
  Weight: 100 kg

DRUGS (4)
  1. REMICADE [Suspect]
     Dosage: 3RD INFUSION.
     Route: 042
  2. REMICADE [Suspect]
     Dosage: 1ST INFUSION.
     Route: 042
  3. SANDIMMUNE [Concomitant]
     Route: 048
  4. EUTHYROX [Concomitant]
     Route: 048

REACTIONS (4)
  - BURNING SENSATION [None]
  - ERYTHEMA [None]
  - HYPOVENTILATION [None]
  - INFUSION RELATED REACTION [None]
